FAERS Safety Report 5514268-1 (Version None)
Quarter: 2007Q4

REPORT INFORMATION
  Report Type: 
  Country: None (occurrence: None)
  Receive Date: 20071102
  Receipt Date: 20070926
  Transmission Date: 20080405
  Serious: Yes (Other)
  Sender: FDA-Public Use
  Company Number: 521811

PATIENT
  Age: 76 Year
  Sex: Female
  Weight: 49 kg

DRUGS (5)
  1. BONIVA [Suspect]
     Indication: OSTEOPOROSIS
     Dosage: 3 MG 1 PER 3 MONTH INTRAVENOUS
     Route: 042
     Dates: start: 20060815, end: 20060815
  2. DARVOCET (DEXTROPROPOXYPHENE/PARACETAMOL) [Concomitant]
  3. SYNTHROID [Concomitant]
  4. PRILOSEC [Concomitant]
  5. B12 (CYANOCOBALAMIN) [Concomitant]

REACTIONS (2)
  - FACIAL PAIN [None]
  - HYPERTENSION [None]
